FAERS Safety Report 8957693 (Version 2)
Quarter: 2013Q1

REPORT INFORMATION
  Report Type: Spontaneous
  Country: AT (occurrence: AT)
  Receive Date: 20121211
  Receipt Date: 20130121
  Transmission Date: 20140127
  Serious: Yes (Other)
  Sender: FDA-Public Use
  Company Number: AT-ELI_LILLY_AND_COMPANY-AT201211009268

PATIENT
  Sex: Female

DRUGS (4)
  1. CYMBALTA [Suspect]
     Indication: DEPRESSION
     Dosage: 90 MG, EACH MORNING
     Route: 048
     Dates: start: 20110530
  2. QUETIALAN [Concomitant]
     Dosage: 100 MG + 50 MG , PRN
     Dates: start: 201105
  3. XANOR [Concomitant]
     Dosage: 0.5 MG, BID
     Dates: start: 201103
  4. PSODERMIL [Concomitant]
     Dosage: UNK

REACTIONS (2)
  - Abortion spontaneous [Unknown]
  - Exposure during pregnancy [Recovered/Resolved]
